FAERS Safety Report 19510967 (Version 1)
Quarter: 2021Q3

REPORT INFORMATION
  Report Type: Spontaneous
  Country: CN (occurrence: CN)
  Receive Date: 20210709
  Receipt Date: 20210709
  Transmission Date: 20211014
  Serious: Yes (Hospitalization, Other)
  Sender: FDA-Public Use
  Company Number: CN-SA-2021SA225023

PATIENT
  Age: 68 Year
  Sex: Male
  Weight: 50 kg

DRUGS (4)
  1. RIFAPENTINE [Suspect]
     Active Substance: RIFAPENTINE
     Indication: PULMONARY TUBERCULOSIS
     Dosage: 4 DF, QD
     Route: 048
     Dates: start: 20200819, end: 20210226
  2. ISONIAZID. [Suspect]
     Active Substance: ISONIAZID
     Indication: PULMONARY TUBERCULOSIS
     Dosage: 3 DF, QD
     Route: 048
     Dates: start: 20200819, end: 20210226
  3. LEVOFLOXACIN. [Suspect]
     Active Substance: LEVOFLOXACIN
     Indication: TUBERCULOSIS
     Dosage: 0.5 G, QD
     Route: 048
     Dates: start: 20200819, end: 20210226
  4. ETHAMBUTOL [Suspect]
     Active Substance: ETHAMBUTOL HYDROCHLORIDE
     Indication: PULMONARY TUBERCULOSIS
     Dosage: 3 DF, QD
     Route: 048
     Dates: start: 20200819, end: 20210226

REACTIONS (4)
  - Off label use [Unknown]
  - Drug reaction with eosinophilia and systemic symptoms [Recovering/Resolving]
  - Pityriasis lichenoides et varioliformis acuta [Recovering/Resolving]
  - Pruritus [Unknown]

NARRATIVE: CASE EVENT DATE: 20210116
